FAERS Safety Report 19462328 (Version 1)
Quarter: 2021Q2

REPORT INFORMATION
  Report Type: Spontaneous
  Country: ES (occurrence: ES)
  Receive Date: 20210625
  Receipt Date: 20210625
  Transmission Date: 20210717
  Serious: Yes (Hospitalization)
  Sender: FDA-Public Use
  Company Number: ES-TEVA-2021-ES-1925600

PATIENT
  Age: 68 Year
  Sex: Female

DRUGS (2)
  1. GABAPENTINA (2641A) [Suspect]
     Active Substance: GABAPENTIN
     Indication: PAIN
     Dosage: 2 DOSAGE FORMS DAILY; 1?0?1
     Route: 048
     Dates: start: 20200807, end: 20200813
  2. METAMIZOLE [Suspect]
     Active Substance: METAMIZOLE
     Indication: PAIN
     Dosage: 3 DOSAGE FORMS DAILY; 1?1?1
     Route: 042
     Dates: start: 20200807, end: 20200814

REACTIONS (2)
  - Pancreatitis acute [Recovered/Resolved]
  - Condition aggravated [Recovered/Resolved]

NARRATIVE: CASE EVENT DATE: 20200814
